FAERS Safety Report 6403688-9 (Version None)
Quarter: 2009Q4

REPORT INFORMATION
  Report Type: 
  Country: None (occurrence: None)
  Receive Date: 20091016
  Receipt Date: 20091012
  Transmission Date: 20100525
  Serious: Yes (Hospitalization)
  Sender: FDA-Public Use
  Company Number: DE-ELI_LILLY_AND_COMPANY-DE200910003066

PATIENT
  Sex: Female

DRUGS (5)
  1. ALIMTA [Suspect]
     Indication: LUNG ADENOCARCINOMA
     Dosage: 500 MG/M2, UNKNOWN
     Route: 042
     Dates: start: 20090827
  2. FOLSAURE [Concomitant]
     Dosage: UNK, UNKNOWN
  3. VITAMIN B-12 [Concomitant]
     Dosage: UNK, UNKNOWN
  4. DEXAMETHASONE [Concomitant]
     Dosage: UNK, UNKNOWN
  5. ONDANSETRON [Concomitant]
     Dosage: UNK, UNKNOWN

REACTIONS (3)
  - CELLULITIS [None]
  - RASH PUSTULAR [None]
  - SKIN EXFOLIATION [None]
